FAERS Safety Report 4732249-2 (Version None)
Quarter: 2005Q3

REPORT INFORMATION
  Report Type: 
  Country: None (occurrence: None)
  Receive Date: 20050725
  Receipt Date: 20040720
  Transmission Date: 20060218
  Serious: Yes (Death)
  Sender: FDA-Public Use
  Company Number: USA-2004-0016093

PATIENT
  Age: 44 Year
  Sex: Female
  Weight: 84.8 kg

DRUGS (12)
  1. MORPHINE SULFATE [Suspect]
  2. PROPOXYPHENE HCL [Suspect]
  3. VALPROIC ACID (VALPROIC ACID) [Suspect]
  4. CAFFEINE (CAFFEINE) [Suspect]
  5. EPHEDRINE (EPHEDRINE) [Suspect]
  6. PSEUDOEPHEDRINE HCL [Suspect]
  7. NICOTINE [Suspect]
  8. TRAMADOL HCL [Suspect]
  9. CHLORPHENIRAMINE TAB [Suspect]
  10. CYCLOBENZAPRINE HCL [Suspect]
  11. DEXTROMETHORPHAN HYDROBROMIDE [Suspect]
  12. PAROXETINE HCL [Suspect]

REACTIONS (1)
  - ACCIDENTAL OVERDOSE [None]
